FAERS Safety Report 6643928-4 (Version None)
Quarter: 2010Q1

REPORT INFORMATION
  Report Type: 
  Country: None (occurrence: None)
  Receive Date: 20100322
  Receipt Date: 20100310
  Transmission Date: 20100710
  Serious: Yes (Hospitalization)
  Sender: FDA-Public Use
  Company Number: US-ELI_LILLY_AND_COMPANY-US200903003312

PATIENT
  Sex: Female
  Weight: 126.98 kg

DRUGS (11)
  1. BYETTA [Suspect]
     Dosage: 5 UG, UNK
     Dates: start: 20080101, end: 20080901
  2. CRESTOR [Concomitant]
  3. LIPITOR [Concomitant]
  4. HYZAAR [Concomitant]
  5. POTASSIUM [Concomitant]
  6. SIMVASTATIN [Concomitant]
  7. AZITHROMYCIN [Concomitant]
  8. TEMAZEPAM [Concomitant]
  9. ASPIRIN [Concomitant]
  10. LOVENOX [Concomitant]
  11. INSULIN [Concomitant]

REACTIONS (6)
  - ABDOMINAL PAIN UPPER [None]
  - EMOTIONAL DISTRESS [None]
  - HEADACHE [None]
  - OFF LABEL USE [None]
  - PANCREATITIS [None]
  - RENAL FAILURE CHRONIC [None]
